FAERS Safety Report 21010904 (Version 3)
Quarter: 2022Q2

REPORT INFORMATION
  Report Type: Spontaneous
  Country: ES (occurrence: ES)
  Receive Date: 20220627
  Receipt Date: 20220630
  Transmission Date: 20220720
  Serious: Yes (Hospitalization)
  Sender: FDA-Public Use
  Company Number: ES-BAYER-2022P004484

PATIENT
  Age: 60 Year
  Sex: Female
  Weight: 71.5 kg

DRUGS (7)
  1. RIOCIGUAT [Suspect]
     Active Substance: RIOCIGUAT
     Indication: Pulmonary arterial hypertension
     Dosage: 1 MG, Q8HR
     Route: 048
     Dates: start: 20220530, end: 20220607
  2. RIOCIGUAT [Suspect]
     Active Substance: RIOCIGUAT
     Indication: Pulmonary arterial hypertension
     Dosage: 1 MG, Q8HR
     Route: 048
     Dates: start: 20220613
  3. MACITENTAN [Concomitant]
     Active Substance: MACITENTAN
     Indication: Pulmonary hypertension
     Dosage: 10 MG, QD
     Route: 048
     Dates: start: 201711
  4. SELEXIPAG [Concomitant]
     Active Substance: SELEXIPAG
     Indication: Pulmonary hypertension
     Dosage: UNK
     Dates: start: 201711
  5. FUROSEMIDE [Concomitant]
     Active Substance: FUROSEMIDE
     Indication: Pulmonary hypertension
     Dosage: UNK
     Dates: start: 2017
  6. UNSPECIFIED INGREDIENT [Concomitant]
     Active Substance: UNSPECIFIED INGREDIENT
     Indication: Pulmonary hypertension
     Dosage: UNK
     Dates: start: 2017
  7. SILDENAFIL [Concomitant]
     Active Substance: SILDENAFIL
     Dosage: UNK

REACTIONS (3)
  - Renal failure [Recovering/Resolving]
  - Diarrhoea [None]
  - Labelled drug-drug interaction medication error [None]

NARRATIVE: CASE EVENT DATE: 20220606
